FAERS Safety Report 19913735 (Version 1)
Quarter: 2021Q4

REPORT INFORMATION
  Report Type: Spontaneous
  Country: DE (occurrence: DE)
  Receive Date: 20211004
  Receipt Date: 20211004
  Transmission Date: 20220303
  Serious: Yes (Congenital Anomaly, Other)
  Sender: FDA-Public Use
  Company Number: DE-EMBRYOTOX-202001347

PATIENT
  Sex: Female
  Weight: 3.36 kg

DRUGS (6)
  1. PRAMIPEXOLE [Suspect]
     Active Substance: PRAMIPEXOLE
     Indication: Restless legs syndrome
     Dosage: 0.52 MILLIGRAM, QD (0.52 [MG/D (0-1-0) ])
     Route: 064
     Dates: start: 20191224, end: 20200922
  2. PAROXETINE HYDROCHLORIDE [Suspect]
     Active Substance: PAROXETINE HYDROCHLORIDE
     Indication: Depression
     Dosage: 15 MILLIGRAM, QD (15 [MG/D (7.5-7.5-0) ] 2 SEPARATED DOSES)
     Route: 064
     Dates: start: 20191224, end: 20200922
  3. LEVOTHYROXINE [Concomitant]
     Active Substance: LEVOTHYROXINE
     Indication: Autoimmune thyroiditis
     Dosage: 150 [?G/D (BIS 125) ]
     Route: 064
     Dates: start: 20191224, end: 20200922
  4. SCHUSSLER SALZ NR. 7 [Concomitant]
     Indication: Self-medication
     Dosage: UNK
     Route: 064
  5. ALUMINUM HYDROXIDE\MAGNESIUM CARBONATE [Concomitant]
     Active Substance: ALUMINUM HYDROXIDE\MAGNESIUM CARBONATE
     Indication: Dyspepsia
     Dosage: UNK
     Route: 064
  6. METOPROLOL [Concomitant]
     Active Substance: METOPROLOL
     Indication: Gestational hypertension
     Dosage: UNK
     Route: 064

REACTIONS (2)
  - Ventricular septal defect [Recovered/Resolved]
  - Foetal exposure during pregnancy [Recovered/Resolved]
